FAERS Safety Report 12627150 (Version 5)
Quarter: 2017Q1

REPORT INFORMATION
  Report Type: Report from Study
  Country: JP (occurrence: JP)
  Receive Date: 20160805
  Receipt Date: 20170207
  Transmission Date: 20170428
  Serious: Yes (Hospitalization, Other)
  Sender: FDA-Public Use
  Company Number: JP-BRISTOL-MYERS SQUIBB COMPANY-BMS-2016-054571

PATIENT
  Age: 58 Year
  Sex: Female
  Weight: 48 kg

DRUGS (2)
  1. IPILIMUMAB [Suspect]
     Active Substance: IPILIMUMAB
     Indication: MALIGNANT MELANOMA
     Dosage: 3 MG/KG, Q3WK
     Route: 065
     Dates: start: 20160614
  2. OPDIVO [Suspect]
     Active Substance: NIVOLUMAB
     Indication: MALIGNANT MELANOMA
     Dosage: UNK
     Route: 065

REACTIONS (9)
  - Pruritus [Recovering/Resolving]
  - Colitis [Recovering/Resolving]
  - Hyponatraemia [Unknown]
  - Malaise [Recovering/Resolving]
  - Adrenocortical insufficiency acute [Recovering/Resolving]
  - Blood corticotrophin abnormal [Unknown]
  - Hypophysitis [Recovering/Resolving]
  - Malignant neoplasm progression [Unknown]
  - Blood antidiuretic hormone abnormal [Unknown]

NARRATIVE: CASE EVENT DATE: 20160621
